FAERS Safety Report 8811696 (Version 1)
Quarter: 2012Q4

REPORT INFORMATION
  Report Type: Spontaneous
  Country: US (occurrence: None)
  Receive Date: 20120925
  Receipt Date: 20120925
  Transmission Date: 20130627
  Serious: Yes (Hospitalization)
  Sender: FDA-Public Use
  Company Number: None

PATIENT
  Age: 81 Year
  Sex: Female
  Weight: 81 kg

DRUGS (13)
  1. RIVAROXABAN [Suspect]
     Indication: DEEP VENOUS THROMBOSIS PROPHYLAXIS
     Route: 048
     Dates: start: 20120720, end: 20120721
  2. AMBIEN [Concomitant]
  3. ANTACID LIQUID+SIMETHICONE [Concomitant]
  4. CELEBREX [Concomitant]
  5. CEPACOL SORE THROAT PAIN RELIEF LOZENGE [Concomitant]
  6. LYRICA [Concomitant]
  7. MILK OF MAGNESIA [Concomitant]
  8. OXYCONTIN [Concomitant]
  9. ROPIVACAINE [Concomitant]
  10. SENOKOT [Concomitant]
  11. BISACODYL [Concomitant]
  12. CARVEDILOL [Concomitant]
  13. DIPHENHYDRAMINE [Concomitant]

REACTIONS (1)
  - Pulmonary embolism [None]
